FAERS Safety Report 12676973 (Version 1)
Quarter: 2016Q3

REPORT INFORMATION
  Report Type: Spontaneous
  Country: US (occurrence: US)
  Receive Date: 20160823
  Receipt Date: 20160823
  Transmission Date: 20161109
  Serious: No
  Sender: FDA-Public Use
  Company Number: US-TEVA-607019USA

PATIENT
  Sex: Male

DRUGS (1)
  1. CLONIDINE. [Suspect]
     Active Substance: CLONIDINE
     Dosage: 0.2 MG/DAY
     Route: 062

REACTIONS (4)
  - Drug ineffective [Unknown]
  - Withdrawal syndrome [Unknown]
  - Irritability [Unknown]
  - Insomnia [Unknown]
